FAERS Safety Report 14958871 (Version 3)
Quarter: 2018Q3

REPORT INFORMATION
  Report Type: Spontaneous
  Country: US (occurrence: US)
  Receive Date: 20180531
  Receipt Date: 20180910
  Transmission Date: 20181010
  Serious: Yes (Other)
  Sender: FDA-Public Use
  Company Number: PHEH2018US020214

PATIENT
  Age: 38 Year
  Sex: Female
  Weight: 50.52 kg

DRUGS (7)
  1. TRILEPTAL [Suspect]
     Active Substance: OXCARBAZEPINE
     Indication: BIPOLAR DISORDER
     Dosage: 1200 MG, QD
     Route: 048
     Dates: start: 2011
  2. BUSPAR [Suspect]
     Active Substance: BUSPIRONE HYDROCHLORIDE
     Indication: ANXIETY
     Dosage: 10 MG, BID
     Route: 048
     Dates: start: 20171128
  3. TRILEPTAL [Suspect]
     Active Substance: OXCARBAZEPINE
     Dosage: 900 MG, QD (300 MG, QD IN THE MORNING) 600 MG AT BEDTIME
     Route: 048
     Dates: start: 20180320
  4. REMERON [Suspect]
     Active Substance: MIRTAZAPINE
     Indication: SLEEP DISORDER
     Dosage: 15 MG, QD (PRN)
     Route: 048
     Dates: start: 20171128
  5. TRILEPTAL [Suspect]
     Active Substance: OXCARBAZEPINE
     Indication: AFFECTIVE DISORDER
     Dosage: 900 MG, QD
     Route: 048
  6. TRILEPTAL [Suspect]
     Active Substance: OXCARBAZEPINE
     Dosage: 300 MG, TID
     Route: 048
     Dates: start: 201806
  7. TRILEPTAL [Suspect]
     Active Substance: OXCARBAZEPINE
     Dosage: 300 MG, TID
     Route: 048
     Dates: start: 20171128, end: 20180320

REACTIONS (10)
  - Loss of consciousness [Unknown]
  - Head discomfort [Unknown]
  - Incorrect dose administered [Unknown]
  - Gait disturbance [Unknown]
  - Feeling hot [Unknown]
  - Jaw fracture [Unknown]
  - Dizziness [Unknown]
  - Fall [Unknown]
  - Tremor [Unknown]
  - Tooth loss [Unknown]

NARRATIVE: CASE EVENT DATE: 20180321
